FAERS Safety Report 7737267-8 (Version None)
Quarter: 2011Q3

REPORT INFORMATION
  Report Type: 
  Country: None (occurrence: None)
  Receive Date: 20110908
  Receipt Date: 20110829
  Transmission Date: 20111222
  Serious: Yes (Life-Threatening, Hospitalization, Other)
  Sender: FDA-Public Use
  Company Number: MW-ABBOTT-11P-100-0848695-00

PATIENT
  Age: 30 Year
  Sex: Female
  Weight: 52 kg

DRUGS (4)
  1. LOPINAVIR/RITONAVIR [Suspect]
     Indication: PROPHYLAXIS AGAINST HIV INFECTION
     Dosage: 400/100MG BID
     Route: 048
     Dates: start: 20100112, end: 20100204
  2. COMBIVIR [Concomitant]
     Indication: PROPHYLAXIS AGAINST HIV INFECTION
     Dosage: 300/150MG BID
     Route: 048
     Dates: start: 20100112, end: 20100204
  3. LOPINAVIR/RITONAVIR [Suspect]
     Dates: start: 20100302
  4. TRUVADA [Concomitant]
     Indication: PROPHYLAXIS AGAINST HIV INFECTION
     Dates: start: 20100302

REACTIONS (3)
  - PANCREATITIS [None]
  - BLOOD CREATININE INCREASED [None]
  - VOMITING [None]
